FAERS Safety Report 20068838 (Version 2)
Quarter: 2021Q4

REPORT INFORMATION
  Report Type: Spontaneous
  Country: ZA (occurrence: ZA)
  Receive Date: 20211115
  Receipt Date: 20211119
  Transmission Date: 20220303
  Serious: Yes (Other)
  Sender: FDA-Public Use
  Company Number: ZA-TEVA-2021-ZA-1975886

PATIENT
  Sex: Female

DRUGS (5)
  1. BACLOFEN [Suspect]
     Active Substance: BACLOFEN
     Dosage: 2 TABLETS OVER 2 NIGHTS
     Route: 065
  2. WARFARIN [Concomitant]
     Active Substance: WARFARIN
  3. ECOTRIN [Concomitant]
     Active Substance: ASPIRIN
  4. SIMVASTATIN [Concomitant]
     Active Substance: SIMVASTATIN
  5. ESCITALOPRAM [Concomitant]
     Active Substance: ESCITALOPRAM OXALATE

REACTIONS (3)
  - Haemorrhage [Unknown]
  - Urinary bladder haemorrhage [Unknown]
  - International normalised ratio increased [Unknown]
